FAERS Safety Report 23844358 (Version 2)
Quarter: 2024Q2

REPORT INFORMATION
  Report Type: Spontaneous
  Country: US (occurrence: US)
  Receive Date: 20240510
  Receipt Date: 20240517
  Transmission Date: 20240715
  Serious: Yes (Other)
  Sender: FDA-Public Use
  Company Number: US-APELLIS-2024-APL-0000021

PATIENT

DRUGS (2)
  1. PEGCETACOPLAN [Suspect]
     Active Substance: PEGCETACOPLAN
     Indication: Dry age-related macular degeneration
     Dosage: UNKNOWN DOSE AND FREQUENCY
  2. HUMIRA [Concomitant]
     Active Substance: ADALIMUMAB
     Indication: Rheumatoid arthritis
     Dosage: UNKNOWN

REACTIONS (6)
  - Vitritis [Unknown]
  - Macular thickening [Unknown]
  - Retinal perivascular sheathing [Unknown]
  - Bacterial endophthalmitis [Unknown]
  - Macular scar [Unknown]
  - Vision blurred [Unknown]
